FAERS Safety Report 9373355 (Version 1)
Quarter: 2013Q2

REPORT INFORMATION
  Report Type: Spontaneous
  Country: ES (occurrence: ES)
  Receive Date: 20130627
  Receipt Date: 20130627
  Transmission Date: 20140414
  Serious: Yes (Other)
  Sender: FDA-Public Use
  Company Number: ES-GLAXOSMITHKLINE-B0903549A

PATIENT
  Age: 83 Year
  Sex: Female

DRUGS (2)
  1. VOTRIENT [Suspect]
     Indication: RENAL CELL CARCINOMA
     Dosage: 800MG PER DAY
     Route: 065
     Dates: start: 201202
  2. ENALAPRIL [Concomitant]
     Indication: HYPERTENSION
     Dosage: 10MG PER DAY

REACTIONS (2)
  - Hypertensive crisis [Recovered/Resolved]
  - Asthenia [Recovered/Resolved]
